FAERS Safety Report 5525919-X (Version None)
Quarter: 2007Q4

REPORT INFORMATION
  Report Type: 
  Country: None (occurrence: None)
  Receive Date: 20071126
  Receipt Date: 20071121
  Transmission Date: 20080405
  Serious: Yes (Hospitalization, Other)
  Sender: FDA-Public Use
  Company Number: DE-SANOFI-SYNTHELABO-F01200701482

PATIENT
  Sex: Female

DRUGS (3)
  1. AGGRENOX [Suspect]
     Indication: CEREBROVASCULAR ACCIDENT
     Dosage: 200MG/25MG BID
     Route: 048
     Dates: end: 20071010
  2. CLOPIDOGREL [Suspect]
     Indication: CEREBROVASCULAR ACCIDENT
     Route: 048
     Dates: end: 20071010
  3. MICARDIS [Suspect]
     Route: 048

REACTIONS (4)
  - BARRETT'S OESOPHAGUS [None]
  - FEMUR FRACTURE [None]
  - REFLUX OESOPHAGITIS [None]
  - ULNA FRACTURE [None]
